FAERS Safety Report 23579121 (Version 2)
Quarter: 2024Q3

REPORT INFORMATION
  Report Type: Spontaneous
  Country: US (occurrence: US)
  Receive Date: 20240229
  Receipt Date: 20240925
  Transmission Date: 20241017
  Serious: Yes (Hospitalization, Other)
  Sender: HIKMA
  Company Number: US-HIKMA PHARMACEUTICALS USA INC.-US-H14001-24-01374

PATIENT
  Age: 89 Year
  Sex: Male
  Weight: 76.3 kg

DRUGS (3)
  1. HEPARIN [Suspect]
     Active Substance: HEPARIN SODIUM
     Dosage: 5000 INTERNATIONAL UNIT, Q12H
     Route: 058
  2. HEPARIN [Suspect]
     Active Substance: HEPARIN SODIUM
     Indication: Thrombosis prophylaxis
     Dosage: 5000 INTERNATIONAL UNIT, Q8H
     Route: 058
  3. CLOPIDOGREL [Concomitant]
     Active Substance: CLOPIDOGREL BISULFATE
     Indication: Mesenteric artery thrombosis
     Dosage: UNK
     Route: 065

REACTIONS (7)
  - Factor Xa activity increased [Unknown]
  - Blood urea increased [Unknown]
  - Blood loss anaemia [Recovering/Resolving]
  - Coagulopathy [Recovered/Resolved]
  - Blood creatinine increased [Unknown]
  - Haematoma muscle [Recovering/Resolving]
  - Platelet count decreased [Unknown]
